FAERS Safety Report 6601652-8 (Version None)
Quarter: 2010Q1

REPORT INFORMATION
  Report Type: 
  Country: None (occurrence: None)
  Receive Date: 20100225
  Receipt Date: 20100219
  Transmission Date: 20100710
  Serious: Yes (Death, Hospitalization, Disabling, Other)
  Sender: FDA-Public Use
  Company Number: JP-WYE-H13287910

PATIENT
  Sex: Female
  Weight: 30 kg

DRUGS (6)
  1. ZOSYN [Suspect]
     Indication: PNEUMONIA ASPIRATION
     Route: 041
     Dates: start: 20100121, end: 20100127
  2. VITAMINS NOS [Concomitant]
     Indication: EATING DISORDER
     Route: 041
     Dates: start: 20100121, end: 20100122
  3. VITAMINS NOS [Concomitant]
     Route: 041
     Dates: start: 20100123, end: 20100127
  4. FUROSEMIDE [Concomitant]
     Indication: CARDIAC FAILURE CHRONIC
     Route: 041
     Dates: start: 20100123, end: 20100127
  5. PN TWIN [Concomitant]
     Indication: EATING DISORDER
     Route: 041
     Dates: start: 20100121, end: 20100122
  6. PN TWIN [Concomitant]
     Route: 041
     Dates: start: 20100123, end: 20100127

REACTIONS (7)
  - AZOTAEMIA [None]
  - BLOOD PRESSURE INCREASED [None]
  - CARDIAC ARREST [None]
  - HYPERCAPNIA [None]
  - MELAENA [None]
  - RENAL FAILURE ACUTE [None]
  - RESPIRATORY FAILURE [None]
